FAERS Safety Report 7162178-9 (Version None)
Quarter: 2010Q4

REPORT INFORMATION
  Report Type: 
  Country: None (occurrence: None)
  Receive Date: 20101215
  Receipt Date: 20101206
  Transmission Date: 20110411
  Serious: Yes (Other)
  Sender: FDA-Public Use
  Company Number: BE-ROCHE-745684

PATIENT
  Sex: Female

DRUGS (2)
  1. TRASTUZUMAB [Suspect]
     Dosage: INITIAL DOSE ON DAY 1
     Route: 065
  2. TRASTUZUMAB [Suspect]
     Dosage: FOR 7 MONTHS
     Route: 065

REACTIONS (1)
  - TRICUSPID VALVE INCOMPETENCE [None]
